FAERS Safety Report 21962182 (Version 1)
Quarter: 2023Q1

REPORT INFORMATION
  Report Type: Spontaneous
  Country: GB (occurrence: GB)
  Receive Date: 20230207
  Receipt Date: 20230207
  Transmission Date: 20230417
  Serious: Yes (Hospitalization, Other)
  Sender: FDA-Public Use
  Company Number: GB-MHRA-MED-202302021554438970-LNYHF

PATIENT
  Age: 76 Year
  Sex: Female

DRUGS (9)
  1. CYTARABINE [Suspect]
     Active Substance: CYTARABINE
     Dosage: 20 MG/M2 (38 MG-ADMINISTERED AT HOME)
  2. VENETOCLAX [Concomitant]
     Active Substance: VENETOCLAX
     Dosage: 100 MG OD, 28 DAYS (POD)
  3. ALLOPURINOL [Concomitant]
     Active Substance: ALLOPURINOL
     Dosage: 300 MG OD, 28 DAYS
  4. COTRIMOXAZOLE [Concomitant]
     Active Substance: SULFAMETHOXAZOLE\TRIMETHOPRIM
     Dosage: 960 MG (TAKE ON MON, WED, FRI ONLY, 28 DAYS)
  5. VORICONAZOLE [Concomitant]
     Active Substance: VORICONAZOLE
     Dosage: 200 MG BD 28 DAYS
  6. ACYCLOVIR [Concomitant]
     Active Substance: ACYCLOVIR
     Dosage: 400 MG BD, 28 DAYS (POD)
  7. LOPERAMIDE [Concomitant]
     Active Substance: LOPERAMIDE
     Dosage: 2 MG (TAKE TWO AFTER FIRST LOOSE STOOL THEN ONE AFTER EACH FURTHER LOOSE STOOL  MAX 8 IN 24 HOURS)
  8. METOCLOPRAMIDE [Concomitant]
     Active Substance: METOCLOPRAMIDE
     Dosage: 10 MG PRN (UP TO TDS, 14 DAYS)
  9. POSACONAZOLE [Concomitant]
     Active Substance: POSACONAZOLE
     Dosage: 300 MG OD, 28 DAYS

REACTIONS (1)
  - Stevens-Johnson syndrome [Recovering/Resolving]

NARRATIVE: CASE EVENT DATE: 20230131
